FAERS Safety Report 8259133-4 (Version None)
Quarter: 2012Q2

REPORT INFORMATION
  Report Type: 
  Country: None (occurrence: None)
  Receive Date: 20120404
  Receipt Date: 20120326
  Transmission Date: 20120825
  Serious: Yes (Other)
  Sender: FDA-Public Use
  Company Number: US-ASTRAZENECA-2012SE20306

PATIENT
  Age: 27 Year
  Sex: Male

DRUGS (5)
  1. QUETIAPINE [Suspect]
     Indication: SLEEP DISORDER
     Route: 048
  2. ZYPREXA [Suspect]
     Indication: POST-TRAUMATIC STRESS DISORDER
     Route: 048
  3. QUETIAPINE [Suspect]
     Route: 048
  4. QUETIAPINE [Suspect]
     Route: 048
  5. QUETIAPINE [Suspect]
     Indication: POST-TRAUMATIC STRESS DISORDER
     Route: 048

REACTIONS (6)
  - BLOOD TRIGLYCERIDES INCREASED [None]
  - LOW DENSITY LIPOPROTEIN INCREASED [None]
  - METABOLIC SYNDROME [None]
  - BLOOD CHOLESTEROL INCREASED [None]
  - BLOOD GLUCOSE INCREASED [None]
  - HIGH DENSITY LIPOPROTEIN DECREASED [None]
